FAERS Safety Report 12435524 (Version 1)
Quarter: 2016Q2

REPORT INFORMATION
  Report Type: Spontaneous
  Country: US (occurrence: US)
  Receive Date: 20160603
  Receipt Date: 20160603
  Transmission Date: 20160815
  Serious: No
  Sender: FDA-Public Use
  Company Number: US-ROCHE-1730487

PATIENT
  Sex: Female

DRUGS (4)
  1. MELOXICAM. [Concomitant]
     Active Substance: MELOXICAM
  2. TRAMADOL. [Concomitant]
     Active Substance: TRAMADOL
  3. PREDNISOLONE. [Concomitant]
     Active Substance: PREDNISOLONE
  4. ACTEMRA [Suspect]
     Active Substance: TOCILIZUMAB
     Indication: PRODUCT USED FOR UNKNOWN INDICATION
     Route: 058
     Dates: start: 20150902

REACTIONS (1)
  - Drug ineffective [Unknown]
